FAERS Safety Report 25544943 (Version 1)
Quarter: 2025Q3

REPORT INFORMATION
  Report Type: Spontaneous
  Country: US (occurrence: None)
  Receive Date: 20250711
  Receipt Date: 20250711
  Transmission Date: 20251021
  Serious: Yes (Hospitalization)
  Sender: FDA-CTU
  Company Number: None

PATIENT
  Age: 57 Year
  Sex: Male

DRUGS (6)
  1. LENALIDOMIDE [Suspect]
     Active Substance: LENALIDOMIDE
     Indication: Peripheral T-cell lymphoma unspecified
     Route: 048
     Dates: start: 20250303, end: 20250711
  2. METOPROLOL SUCCINATE [Concomitant]
     Active Substance: METOPROLOL SUCCINATE
  3. MIDODRINE [Concomitant]
     Active Substance: MIDODRINE
  4. VITAMINC [Concomitant]
  5. PREDNISONE [Concomitant]
     Active Substance: PREDNISONE
  6. SEPTRA REG STRENGTH [Concomitant]

REACTIONS (2)
  - Hypercalcaemia [None]
  - Thrombocytopenia [None]

NARRATIVE: CASE EVENT DATE: 20250708
